FAERS Safety Report 5220729-5 (Version None)
Quarter: 2007Q1

REPORT INFORMATION
  Report Type: 
  Country: None (occurrence: None)
  Receive Date: 20070125
  Receipt Date: 20070125
  Transmission Date: 20070707
  Serious: Yes (Other)
  Sender: FDA-Public Use
  Company Number: None

PATIENT
  Age: 50 Year
  Sex: Male
  Weight: 89.8122 kg

DRUGS (4)
  1. SERTRALINE [Suspect]
     Indication: DEPRESSIVE SYMPTOM
     Dosage: 50 MG QD ORAL
     Route: 048
     Dates: start: 20070110, end: 20070113
  2. SERTRALINE [Suspect]
     Indication: DRUG ABUSER
     Dosage: 50 MG QD ORAL
     Route: 048
     Dates: start: 20070110, end: 20070113
  3. GABAPENTIN [Suspect]
     Indication: DEPRESSIVE SYMPTOM
     Dosage: 200 MG BID ORAL
     Route: 048
     Dates: start: 20070110, end: 20070113
  4. GABAPENTIN [Suspect]
     Indication: DRUG ABUSER
     Dosage: 200 MG BID ORAL
     Route: 048
     Dates: start: 20070110, end: 20070113

REACTIONS (4)
  - DRUG HYPERSENSITIVITY [None]
  - PRURITUS [None]
  - RASH [None]
  - WHEEZING [None]
